FAERS Safety Report 4319458-1 (Version None)
Quarter: 2004Q1

REPORT INFORMATION
  Report Type: 
  Country: None (occurrence: None)
  Receive Date: 20040316
  Receipt Date: 20040303
  Transmission Date: 20041129
  Serious: Yes (Disabling)
  Sender: FDA-Public Use
  Company Number: 2004-BP-01517BP

PATIENT
  Age: 84 Year
  Sex: Female

DRUGS (4)
  1. MOBIC [Suspect]
     Indication: ARTHRALGIA
     Dosage: 30 MG (15 MG, 1 BID), PO
     Route: 048
     Dates: start: 20040204
  2. MOBIC [Suspect]
     Indication: OSTEOARTHRITIS
     Dosage: 30 MG (15 MG, 1 BID), PO
     Route: 048
     Dates: start: 20040204
  3. EYE DROPS [Concomitant]
  4. VITAMINS (VITAMINS) [Concomitant]

REACTIONS (8)
  - ABDOMINAL PAIN UPPER [None]
  - DIZZINESS [None]
  - FATIGUE [None]
  - GASTRIC ULCER [None]
  - GASTROENTERITIS HELICOBACTER [None]
  - NAUSEA [None]
  - VOMITING [None]
  - WEIGHT DECREASED [None]
